FAERS Safety Report 18970356 (Version 1)
Quarter: 2021Q1

REPORT INFORMATION
  Report Type: Spontaneous
  Country: US (occurrence: US)
  Receive Date: 20210304
  Receipt Date: 20210304
  Transmission Date: 20210420
  Serious: Yes (Life-Threatening, Hospitalization)
  Sender: FDA-Public Use
  Company Number: US-ELI_LILLY_AND_COMPANY-US202103001065

PATIENT
  Age: 66 Year
  Sex: Male

DRUGS (1)
  1. RAMUCIRUMAB [Suspect]
     Active Substance: RAMUCIRUMAB
     Indication: HEPATOCELLULAR CARCINOMA
     Dosage: UNK, UNKNOWN
     Route: 065

REACTIONS (9)
  - Mental status changes [Unknown]
  - Pneumoperitoneum [Unknown]
  - Hepatic necrosis [Unknown]
  - Duodenal perforation [Unknown]
  - Peritonitis bacterial [Unknown]
  - Multiple organ dysfunction syndrome [Unknown]
  - Lactic acidosis [Unknown]
  - Leukocytosis [Unknown]
  - Tumour rupture [Unknown]
